FAERS Safety Report 23527960 (Version 1)
Quarter: 2024Q1

REPORT INFORMATION
  Report Type: Spontaneous
  Country: NL (occurrence: NL)
  Receive Date: 20240215
  Receipt Date: 20240215
  Transmission Date: 20240410
  Serious: Yes (Life-Threatening, Disabling, Other)
  Sender: FDA-Public Use
  Company Number: None

PATIENT
  Age: 59 Year
  Sex: Female
  Weight: 63 kg

DRUGS (4)
  1. LISINOPRIL [Suspect]
     Active Substance: LISINOPRIL
     Indication: Cerebrovascular accident
     Dosage: 1 DAY 1. A ONE-OFF GIVEN THE SEVERITY OF THE SIDE EFFECT, BRAND NAME NOT SPECIFIED
     Route: 065
     Dates: start: 20230622, end: 20230622
  2. ASPIRIN [Concomitant]
     Active Substance: ASPIRIN
     Indication: Product used for unknown indication
     Dosage: ACETYLSALICYLZUUR BRAND NAME NOT SPECIFIED
     Route: 065
  3. EUTHYROX [Concomitant]
     Active Substance: LEVOTHYROXINE SODIUM
     Indication: Product used for unknown indication
     Dosage: LEVOTHYROXINE TABLET  75UG (NATRIUM)
     Route: 065
  4. CLOPIDOGREL [Concomitant]
     Active Substance: CLOPIDOGREL BISULFATE
     Indication: Product used for unknown indication
     Dosage: BRAND NAME NOT SPECIFIED
     Route: 065

REACTIONS (6)
  - Hypertension [Recovering/Resolving]
  - Disturbance in attention [Not Recovered/Not Resolved]
  - Depressed level of consciousness [Recovered/Resolved]
  - Muscle spasms [Recovering/Resolving]
  - Headache [Recovering/Resolving]
  - Muscular weakness [Recovered/Resolved]
